FAERS Safety Report 9339085 (Version 1)
Quarter: 2013Q2

REPORT INFORMATION
  Report Type: Spontaneous
  Country: US (occurrence: US)
  Receive Date: 20130610
  Receipt Date: 20130610
  Transmission Date: 20140414
  Serious: Yes (Other)
  Sender: FDA-Public Use
  Company Number: CHPA2013US009308

PATIENT
  Sex: Female

DRUGS (2)
  1. GAS-X CHEWABLE TABLETS CHERRY CREME [Suspect]
     Dosage: 2 DF, UNK
     Route: 048
  2. GAS-X UNKNOWN THIN STRIP [Suspect]
     Dosage: 2 DF, UNK
     Route: 048

REACTIONS (4)
  - Haematochezia [Not Recovered/Not Resolved]
  - Inappropriate schedule of drug administration [Unknown]
  - Off label use [Unknown]
  - Therapeutic response unexpected [Unknown]
